FAERS Safety Report 6250063-6 (Version None)
Quarter: 2009Q2

REPORT INFORMATION
  Report Type: 
  Country: None (occurrence: None)
  Receive Date: 20090625
  Receipt Date: 20090617
  Transmission Date: 20091009
  Serious: Yes (Hospitalization)
  Sender: FDA-Public Use
  Company Number: 1-18905209

PATIENT
  Age: 2 Day

DRUGS (2)
  1. IBUPROFEN [Suspect]
     Indication: PATENT DUCTUS ARTERIOSUS
     Dosage: 10 MG/KG X1, 5 MG/KG X2, INTRAVENOUS
     Route: 042
  2. IDOMETHACIN [Concomitant]

REACTIONS (2)
  - NO THERAPEUTIC RESPONSE [None]
  - RENAL FAILURE ACUTE [None]
